FAERS Safety Report 7459394-5 (Version None)
Quarter: 2011Q2

REPORT INFORMATION
  Report Type: 
  Country: None (occurrence: None)
  Receive Date: 20110505
  Receipt Date: 20110420
  Transmission Date: 20111010
  Serious: Yes (Other)
  Sender: FDA-Public Use
  Company Number: US-JNJFOC-20110410186

PATIENT
  Sex: Female
  Weight: 68.04 kg

DRUGS (4)
  1. DURAGESIC [Suspect]
     Indication: PAIN
     Route: 062
  2. NEXIUM [Concomitant]
     Indication: ULCER
     Route: 048
  3. DURAGESIC [Suspect]
     Route: 062
  4. FENTANYL-100 [Suspect]
     Indication: PAIN
     Route: 062

REACTIONS (8)
  - MUSCLE SPASMS [None]
  - DRUG INEFFECTIVE [None]
  - RASH GENERALISED [None]
  - FIBROMYALGIA [None]
  - INTERVERTEBRAL DISC DISORDER [None]
  - ROAD TRAFFIC ACCIDENT [None]
  - BODY HEIGHT DECREASED [None]
  - NECK PAIN [None]
